FAERS Safety Report 24457310 (Version 1)
Quarter: 2024Q4

REPORT INFORMATION
  Report Type: Spontaneous
  Country: NL (occurrence: NL)
  Receive Date: 20241018
  Receipt Date: 20241018
  Transmission Date: 20250115
  Serious: Yes (Other)
  Sender: CELLTRION
  Company Number: NL-SA-2024SA110391

PATIENT

DRUGS (3)
  1. RITUXIMAB [Suspect]
     Active Substance: RITUXIMAB
     Indication: Prophylaxis against graft versus host disease
  2. TREOSULFAN [Suspect]
     Active Substance: TREOSULFAN
     Indication: Chemotherapy
  3. FLUDARABINE PHOSPHATE [Suspect]
     Active Substance: FLUDARABINE PHOSPHATE
     Indication: Chemotherapy

REACTIONS (6)
  - Encephalopathy [Recovering/Resolving]
  - Neurological decompensation [Recovering/Resolving]
  - Neurotoxicity [Recovering/Resolving]
  - Encephalitis [Recovering/Resolving]
  - Off label use [Unknown]
  - Intentional product use issue [Unknown]
